FAERS Safety Report 8565237-9 (Version None)
Quarter: 2012Q3

REPORT INFORMATION
  Report Type: 
  Country: None (occurrence: None)
  Receive Date: 20120803
  Receipt Date: 20120801
  Transmission Date: 20120928
  Serious: Yes (Hospitalization)
  Sender: FDA-Public Use
  Company Number: JP-GLAXOSMITHKLINE-B0814509A

PATIENT
  Age: 15 Year
  Sex: Female
  Weight: 42 kg

DRUGS (4)
  1. VALPROATE SODIUM [Concomitant]
     Dosage: 1.7G PER DAY
     Route: 048
  2. LAMICTAL [Suspect]
     Indication: EPILEPSY
     Dosage: 25MG TWICE PER DAY
     Route: 048
     Dates: start: 20120625
  3. ZONISAMIDE [Concomitant]
     Dosage: 1.2G PER DAY
     Route: 048
  4. LAMICTAL [Suspect]
     Route: 048
     Dates: end: 20120709

REACTIONS (2)
  - SKIN DISORDER [None]
  - ERYTHEMA MULTIFORME [None]
